FAERS Safety Report 13681213 (Version 1)
Quarter: 2017Q2

REPORT INFORMATION
  Report Type: Spontaneous
  Country: US (occurrence: US)
  Receive Date: 20170622
  Receipt Date: 20170622
  Transmission Date: 20170830
  Serious: Yes (Life-Threatening, Hospitalization, Disabling)
  Sender: FDA-Public Use
  Company Number: None

PATIENT
  Age: 28 Year
  Sex: Female
  Weight: 74 kg

DRUGS (1)
  1. XANAX [Suspect]
     Active Substance: ALPRAZOLAM
     Indication: POST-TRAUMATIC STRESS DISORDER
     Dosage: ?          QUANTITY:50 TABLET(S);?
     Route: 048
     Dates: start: 20130227, end: 20150616

REACTIONS (6)
  - Weight increased [None]
  - Insomnia [None]
  - Withdrawal syndrome [None]
  - Depression [None]
  - Amnesia [None]
  - Anger [None]

NARRATIVE: CASE EVENT DATE: 20130227
